FAERS Safety Report 8845637 (Version 1)
Quarter: 2012Q4

REPORT INFORMATION
  Report Type: 
  Country: US (occurrence: US)
  Receive Date: 20121017
  Receipt Date: 20121017
  Transmission Date: 20130627
  Serious: No
  Sender: FDA-Public Use
  Company Number: US-B.I. PHARMACEUTICALS,INC./RIDGEFIELD-2012-BP-24553BP

PATIENT
  Age: 77 Year
  Sex: Female
  Weight: 52 kg

DRUGS (10)
  1. SPIRIVA [Suspect]
     Indication: PNEUMONIA
     Dosage: 18 mcg
     Route: 055
     Dates: start: 201205
  2. SPIRIVA [Suspect]
     Route: 048
     Dates: start: 20121004, end: 20121004
  3. GABAPENTIN [Concomitant]
     Indication: NEURALGIA
     Dosage: 2400 mg
     Route: 048
     Dates: start: 201109
  4. PERCOCET [Concomitant]
     Indication: BACK PAIN
     Route: 048
     Dates: start: 2009
  5. ROBAXIN [Concomitant]
     Indication: MUSCLE SPASMS
     Dosage: 2250 mg
     Route: 048
     Dates: start: 201109
  6. ADVAIR [Concomitant]
     Indication: ASTHMA
     Dosage: 4 puf
     Route: 055
     Dates: start: 201204
  7. AMIODORONE [Concomitant]
     Indication: ATRIAL FIBRILLATION
     Dosage: 200 mg
     Route: 048
     Dates: start: 2009
  8. FLONASE [Concomitant]
     Indication: SEASONAL ALLERGY
     Route: 045
     Dates: start: 2002
  9. AMBIEN [Concomitant]
     Indication: INSOMNIA
     Dosage: 5 mg
     Route: 048
     Dates: start: 2002
  10. PRAVASTATIN [Concomitant]
     Indication: BLOOD CHOLESTEROL INCREASED
     Dosage: 20 mg
     Route: 048
     Dates: start: 2008

REACTIONS (1)
  - Incorrect route of drug administration [Recovered/Resolved]
